FAERS Safety Report 4311960-1 (Version None)
Quarter: 2004Q1

REPORT INFORMATION
  Report Type: 
  Country: None (occurrence: None)
  Receive Date: 20040303
  Receipt Date: 20040212
  Transmission Date: 20041129
  Serious: No
  Sender: FDA-Public Use
  Company Number: 2003UW14152

PATIENT
  Age: 29 Year
  Sex: Female
  Weight: 57.7 kg

DRUGS (22)
  1. MERREM [Suspect]
     Dosage: 1 G DAILY IV
     Route: 042
  2. BENADRYL [Concomitant]
  3. CANESTEN [Concomitant]
  4. CELESTODERM [Concomitant]
  5. CIPRO [Concomitant]
  6. CORTATE [Concomitant]
  7. FLAGYL [Concomitant]
  8. FUCIDINE CAP [Concomitant]
  9. ILOTYCIN [Concomitant]
  10. PREDNISONE [Concomitant]
  11. TANTUM [Concomitant]
  12. VANCOMYCIN [Concomitant]
  13. FRAGMIN [Concomitant]
  14. ZYLOPRIM [Concomitant]
  15. CYCLOPHOSPHAMIDE [Concomitant]
  16. ONCOVIN [Concomitant]
  17. ADRIAMYCIN PFS [Concomitant]
  18. METHOTREXATE [Concomitant]
  19. DIFLUCAN [Concomitant]
  20. DEMEROL [Concomitant]
  21. ZOVIRAX [Concomitant]
  22. .. [Concomitant]

REACTIONS (4)
  - DYSPHAGIA [None]
  - DYSURIA [None]
  - EYELID OEDEMA [None]
  - STEVENS-JOHNSON SYNDROME [None]
